FAERS Safety Report 13421169 (Version 3)
Quarter: 2017Q3

REPORT INFORMATION
  Report Type: Report from Study
  Country: TH (occurrence: TH)
  Receive Date: 20170410
  Receipt Date: 20170719
  Transmission Date: 20171127
  Serious: No
  Sender: FDA-Public Use
  Company Number: TH-ROCHE-1896185

PATIENT
  Age: 56 Year
  Sex: Male
  Weight: 79.3 kg

DRUGS (18)
  1. ATENOLOL. [Concomitant]
     Active Substance: ATENOLOL
     Indication: HYPERTENSION
     Route: 048
     Dates: start: 201301, end: 20170426
  2. PROCTOSEDYL (THAILAND) [Concomitant]
     Dosage: PROCTOSEDYL RECTAL SUPPORT
     Route: 054
     Dates: start: 20170118, end: 20170118
  3. ENALAPRIL [Concomitant]
     Active Substance: ENALAPRIL
     Indication: HYPERTENSION
     Route: 048
     Dates: start: 20170427, end: 20170511
  4. ATEZOLIZUMAB. [Suspect]
     Active Substance: ATEZOLIZUMAB
     Indication: RENAL CELL CARCINOMA
     Dosage: MOST RECENT DOSE 1200 MG ON 26/JAN/2017, PRIOR TO HYPOTHYROID.?MOST RECENT DOSE 1200 MG ON 09/MAR/20
     Route: 042
     Dates: start: 20160630
  5. ATENOLOL. [Concomitant]
     Active Substance: ATENOLOL
     Route: 048
     Dates: start: 20170427, end: 20170510
  6. SIMVASTATIN. [Concomitant]
     Active Substance: SIMVASTATIN
     Indication: HYPERLIPIDAEMIA
     Route: 048
     Dates: start: 201301
  7. BEVACIZUMAB. [Suspect]
     Active Substance: BEVACIZUMAB
     Indication: RENAL CELL CARCINOMA
     Dosage: MOST RECENT DOSE 1191 MG ON 26/JAN/2017, PRIOR TO HYPOTHYROID?UNIT DOSE: AS PER PROTOCOL?MOST RECENT
     Route: 042
     Dates: start: 20160630
  8. PARACETAMOL [Concomitant]
     Active Substance: ACETAMINOPHEN
     Route: 048
     Dates: start: 20160926
  9. SODIUM BICARBONATE. [Concomitant]
     Active Substance: SODIUM BICARBONATE
     Route: 042
     Dates: start: 20161030
  10. BROWN MIXTURE (THAILAND) [Concomitant]
     Route: 048
     Dates: start: 20160926
  11. VITAMIN B1+B6+B12 [Concomitant]
     Indication: VITAMIN SUPPLEMENTATION
     Route: 048
     Dates: start: 201301
  12. ATENOLOL. [Concomitant]
     Active Substance: ATENOLOL
     Route: 048
     Dates: start: 20170511
  13. NAC LONG [Concomitant]
     Route: 048
     Dates: start: 20160926
  14. NAC LONG [Concomitant]
     Route: 048
     Dates: start: 20161029
  15. AMLODIPINE [Concomitant]
     Active Substance: AMLODIPINE BESYLATE
     Indication: HYPERTENSION
     Route: 048
     Dates: start: 20170427
  16. WARFARIN [Concomitant]
     Active Substance: WARFARIN
     Indication: ATRIAL FIBRILLATION
     Route: 048
     Dates: start: 201301
  17. LORATADINE. [Concomitant]
     Active Substance: LORATADINE
     Route: 048
     Dates: start: 20160926
  18. MILK OF MAGNESIA [Concomitant]
     Active Substance: MAGNESIUM HYDROXIDE
     Route: 048
     Dates: start: 20170118, end: 20170118

REACTIONS (3)
  - Hypothyroidism [Not Recovered/Not Resolved]
  - Hypophysitis [Recovering/Resolving]
  - Adrenal insufficiency [Unknown]

NARRATIVE: CASE EVENT DATE: 20170216
